FAERS Safety Report 10078744 (Version 4)
Quarter: 2014Q2

REPORT INFORMATION
  Report Type: Spontaneous
  Country: DE (occurrence: None)
  Receive Date: 20140411
  Receipt Date: 20140620
  Transmission Date: 20141212
  Serious: Yes (Disabling, Other)
  Sender: FDA-Public Use
  Company Number: 2014DE003163

PATIENT
  Age: 73 Year
  Sex: Female
  Weight: 60 kg

DRUGS (12)
  1. PONATINIB (AP24534) TABLET [Suspect]
     Indication: CHRONIC MYELOID LEUKAEMIA
     Route: 048
     Dates: start: 20110502
  2. RAMIPRIL (RAMIPRIL) [Concomitant]
  3. HYDROCHLOROTHIAZIDE (HYDROCHLOROTHIAZIDE) [Concomitant]
  4. BISOPROLOL (BISOPROLOL FUMARATE) [Concomitant]
  5. KALINOR (CITRIC ACID, POTASSIUM BICARBONATE, POTASSIUM CITRATE) [Concomitant]
  6. FUROSEMID (FUROSEMID) [Concomitant]
  7. ALLOPURINOL (ALLOPURINOL) [Concomitant]
  8. OMEPRAZOL (OMEPRAZOLE MAGNESIUM) [Concomitant]
  9. VOLTAREN (DICLOFENAC POTASSIUM) [Concomitant]
  10. DICLOFENAC (DICLOFENAC SODIUM) [Concomitant]
  11. CERTOPARIN SODIUM (CERTOPARIN SODIUM) [Concomitant]
  12. IBUPROFEN (IBUPROFEN SODIUM) [Concomitant]

REACTIONS (2)
  - Retinal vein thrombosis [None]
  - Myocardial infarction [None]
